FAERS Safety Report 19767933 (Version 1)
Quarter: 2021Q3

REPORT INFORMATION
  Report Type: Spontaneous
  Country: JP (occurrence: JP)
  Receive Date: 20210831
  Receipt Date: 20210831
  Transmission Date: 20211014
  Serious: Yes (Hospitalization)
  Sender: FDA-Public Use
  Company Number: JP-ASTRAZENECA-2021A701709

PATIENT
  Age: 63 Year
  Sex: Female

DRUGS (1)
  1. FASENRA [Suspect]
     Active Substance: BENRALIZUMAB
     Dosage: DOSE UNKNOWN
     Route: 058

REACTIONS (11)
  - Contusion [Unknown]
  - Pyrexia [Unknown]
  - Epistaxis [Unknown]
  - Mouth haemorrhage [Unknown]
  - Influenza [Unknown]
  - Feeding disorder [Unknown]
  - Balance disorder [Unknown]
  - Injection site pain [Unknown]
  - Ageusia [Unknown]
  - Pulmonary pain [Unknown]
  - Weight decreased [Unknown]
